FAERS Safety Report 13319174 (Version 1)
Quarter: 2017Q1

REPORT INFORMATION
  Report Type: Spontaneous
  Country: NL (occurrence: NL)
  Receive Date: 20170310
  Receipt Date: 20170310
  Transmission Date: 20170428
  Serious: Yes (Other)
  Sender: FDA-Public Use
  Company Number: NL-009507513-1703NLD001198

PATIENT

DRUGS (2)
  1. INTERFERON ALFA-2B [Suspect]
     Active Substance: INTERFERON ALFA-2B
     Dosage: 5 X 10^6 IU, THREE TIMES/WEEK
     Route: 058
  2. PEGINTERFERON ALFA-2B [Suspect]
     Active Substance: PEGINTERFERON ALFA-2B
     Dosage: 180 MICROGRAM, PER WEEK

REACTIONS (10)
  - Product use issue [Unknown]
  - Transaminases increased [Unknown]
  - Adverse event [Unknown]
  - Diarrhoea [Unknown]
  - Neutropenia [Unknown]
  - Fatigue [Unknown]
  - Pyrexia [Unknown]
  - Injection site reaction [Unknown]
  - Malaise [Unknown]
  - Arthralgia [Unknown]
